FAERS Safety Report 19868450 (Version 1)
Quarter: 2021Q3

REPORT INFORMATION
  Report Type: Spontaneous
  Country: GR (occurrence: GR)
  Receive Date: 20210921
  Receipt Date: 20210921
  Transmission Date: 20211014
  Serious: Yes (Hospitalization, Other)
  Sender: FDA-Public Use
  Company Number: GR-ELI_LILLY_AND_COMPANY-GR202109002968

PATIENT
  Age: 64 Year
  Sex: Male
  Weight: 67 kg

DRUGS (10)
  1. ZYPADHERA [Suspect]
     Active Substance: OLANZAPINE PAMOATE
     Indication: PRODUCT USED FOR UNKNOWN INDICATION
     Dosage: 405 MG, OTHER, PER 28 DAYS
     Route: 030
     Dates: start: 20130713
  2. ZYPADHERA [Suspect]
     Active Substance: OLANZAPINE PAMOATE
     Dosage: 405 MG, OTHER, PER 28 DAYS
     Route: 030
     Dates: start: 20210903
  3. ZYPREXA [Concomitant]
     Active Substance: OLANZAPINE
     Indication: SCHIZOPHRENIA
     Dosage: 1 DOSAGE FORM, DAILY
  4. TAVOR [FLUCONAZOLE] [Concomitant]
     Active Substance: FLUCONAZOLE
     Indication: SCHIZOPHRENIA
     Dosage: 3 DOSAGE FORM, DAILY
  5. ZYPADHERA [Suspect]
     Active Substance: OLANZAPINE PAMOATE
     Indication: PRODUCT USED FOR UNKNOWN INDICATION
     Dosage: 405 MG, OTHER, PER 28 DAYS
     Route: 030
     Dates: start: 20130713
  6. ZYPADHERA [Suspect]
     Active Substance: OLANZAPINE PAMOATE
     Dosage: 405 MG, OTHER, PER 28 DAYS
     Route: 030
     Dates: start: 20210903
  7. AKINETON [Concomitant]
     Active Substance: BIPERIDEN HYDROCHLORIDE
     Indication: SCHIZOPHRENIA
     Dosage: 1 DOSAGE FORM, DAILY
  8. ZYPADHERA [Suspect]
     Active Substance: OLANZAPINE PAMOATE
     Indication: PRODUCT USED FOR UNKNOWN INDICATION
     Dosage: 405 MG, OTHER, PER 28 DAYS
     Route: 030
     Dates: start: 20130713
  9. ZYPADHERA [Suspect]
     Active Substance: OLANZAPINE PAMOATE
     Dosage: 405 MG, OTHER, PER 28 DAYS
     Route: 030
     Dates: start: 20210903
  10. DEPAKIN [Concomitant]
     Active Substance: VALPROATE SODIUM
     Indication: SCHIZOPHRENIA
     Dosage: 3 DOSAGE FORM, DAILY

REACTIONS (13)
  - Leukoencephalopathy [Unknown]
  - Neck pain [Recovered/Resolved]
  - Post-injection delirium sedation syndrome [Recovered/Resolved]
  - Carotid arteriosclerosis [Unknown]
  - Troponin increased [Unknown]
  - Lethargy [Unknown]
  - Yellow skin [Recovered/Resolved]
  - Blood bilirubin increased [Unknown]
  - Schizophrenia [Unknown]
  - C-reactive protein increased [Unknown]
  - Loss of consciousness [Recovered/Resolved]
  - Anticonvulsant drug level increased [Unknown]
  - Extrapyramidal disorder [Unknown]

NARRATIVE: CASE EVENT DATE: 20210903
